FAERS Safety Report 6033294-X (Version None)
Quarter: 2009Q1

REPORT INFORMATION
  Report Type: 
  Country: None (occurrence: None)
  Receive Date: 20090105
  Receipt Date: 20080612
  Transmission Date: 20090719
  Serious: Yes (Hospitalization)
  Sender: FDA-Public Use
  Company Number: US-001207

PATIENT
  Age: 72 Year
  Sex: Female

DRUGS (5)
  1. MULTIHANCE [Suspect]
     Indication: LIVER DISORDER
     Dosage: 14 ML QD INTRAVENOUS (NOT OTHERWISE SPECIFIED)
     Route: 042
     Dates: start: 20080611, end: 20080611
  2. MULTIHANCE [Suspect]
     Indication: SOFT TISSUE DISORDER
     Dosage: 14 ML QD INTRAVENOUS (NOT OTHERWISE SPECIFIED)
     Route: 042
     Dates: start: 20080611, end: 20080611
  3. ATIVAN [Concomitant]
  4. LEVAQUIN [Concomitant]
  5. PROTONIX [Concomitant]

REACTIONS (1)
  - HYPERSENSITIVITY [None]
